FAERS Safety Report 5556605-8 (Version None)
Quarter: 2007Q4

REPORT INFORMATION
  Report Type: 
  Country: None (occurrence: None)
  Receive Date: 20071213
  Receipt Date: 20070907
  Transmission Date: 20080405
  Serious: No
  Sender: FDA-Public Use
  Company Number: US-AMGEN-KDL242404

PATIENT
  Sex: Female

DRUGS (1)
  1. ENBREL [Suspect]
     Indication: BEHCET'S SYNDROME
     Route: 058
     Dates: start: 20070812

REACTIONS (7)
  - COUGH [None]
  - FATIGUE [None]
  - HEADACHE [None]
  - HYPOAESTHESIA [None]
  - MUSCLE SPASMS [None]
  - NAUSEA [None]
  - PARAESTHESIA [None]
